FAERS Safety Report 14755566 (Version 1)
Quarter: 2018Q2

REPORT INFORMATION
  Report Type: Spontaneous
  Country: US (occurrence: US)
  Receive Date: 20180413
  Receipt Date: 20180413
  Transmission Date: 20180711
  Serious: Yes (Hospitalization, Other)
  Sender: FDA-Public Use
  Company Number: US-ROCHE-2101643

PATIENT
  Age: 68 Year
  Sex: Female
  Weight: 93.98 kg

DRUGS (3)
  1. OCREVUS [Suspect]
     Active Substance: OCRELIZUMAB
     Indication: MULTIPLE SCLEROSIS RELAPSE
     Dosage: ONGOING:UNKNOWN
     Route: 042
     Dates: start: 20170811
  2. OCREVUS [Suspect]
     Active Substance: OCRELIZUMAB
     Route: 042
     Dates: start: 20180126
  3. MELOXICAM. [Interacting]
     Active Substance: MELOXICAM
     Indication: MULTIPLE SCLEROSIS
     Route: 065

REACTIONS (10)
  - Alopecia [Not Recovered/Not Resolved]
  - Loss of consciousness [Unknown]
  - Orthostatic hypotension [Recovered/Resolved]
  - Contusion [Recovered/Resolved]
  - Tendon rupture [Recovered/Resolved]
  - Fall [Unknown]
  - Hair texture abnormal [Not Recovered/Not Resolved]
  - Dehydration [Recovered/Resolved]
  - Drug interaction [Unknown]
  - Eye contusion [Recovered/Resolved]

NARRATIVE: CASE EVENT DATE: 201802
